FAERS Safety Report 18001503 (Version 1)
Quarter: 2020Q3

REPORT INFORMATION
  Report Type: Spontaneous
  Country: DE (occurrence: DE)
  Receive Date: 20200709
  Receipt Date: 20200709
  Transmission Date: 20201103
  Serious: Yes (Other)
  Sender: FDA-Public Use
  Company Number: NVSC2020DE192342

PATIENT
  Age: 33 Year
  Sex: Male
  Weight: 80 kg

DRUGS (3)
  1. AMOXI 1000 ? 1 A PHARMA [Suspect]
     Active Substance: AMOXICILLIN
     Indication: INFLAMMATION
     Dosage: 1000 MG, Q8H
     Route: 065
     Dates: start: 20190830, end: 20190909
  2. AMOXI 1000 ? 1 A PHARMA [Suspect]
     Active Substance: AMOXICILLIN
     Indication: GASTROINTESTINAL INFECTION
  3. PANTOZOL [Concomitant]
     Active Substance: PANTOPRAZOLE SODIUM
     Indication: PRODUCT USED FOR UNKNOWN INDICATION
     Dosage: 40 MG, Q12H (1?0?1)
     Route: 065

REACTIONS (8)
  - Muscle spasms [Unknown]
  - Discomfort [Unknown]
  - Meningitis viral [Not Recovered/Not Resolved]
  - Pyrexia [Unknown]
  - Paraesthesia [Unknown]
  - Neck pain [Unknown]
  - Dysaesthesia [Recovering/Resolving]
  - Headache [Unknown]

NARRATIVE: CASE EVENT DATE: 201909
